FAERS Safety Report 6930152-0 (Version None)
Quarter: 2010Q3

REPORT INFORMATION
  Report Type: 
  Country: None (occurrence: None)
  Receive Date: 20100818
  Receipt Date: 20100809
  Transmission Date: 20110219
  Serious: Yes (Death)
  Sender: FDA-Public Use
  Company Number: JP-PFIZER INC-2010099463

PATIENT
  Age: 83 Year
  Sex: Male
  Weight: 52 kg

DRUGS (4)
  1. LINEZOLID [Suspect]
     Indication: SEPSIS
     Dosage: 600 MG, 2X/DAY
     Route: 042
     Dates: start: 20091027, end: 20091102
  2. LINEZOLID [Suspect]
     Indication: PNEUMONIA
  3. AMBISOME [Concomitant]
     Dosage: UNK
     Route: 042
     Dates: start: 20091031
  4. INTRALIPID 10% [Concomitant]
     Dosage: UNK
     Route: 042
     Dates: start: 20091030

REACTIONS (2)
  - INTERSTITIAL LUNG DISEASE [None]
  - THROMBOCYTOPENIA [None]
